FAERS Safety Report 19368144 (Version 1)
Quarter: 2021Q2

REPORT INFORMATION
  Report Type: Spontaneous
  Country: US (occurrence: US)
  Receive Date: 20210602
  Receipt Date: 20210602
  Transmission Date: 20210717
  Serious: No
  Sender: FDA-Public Use
  Company Number: US-ROCHE-2399678

PATIENT
  Sex: Male
  Weight: 88.53 kg

DRUGS (5)
  1. VITAMIN D3 [Concomitant]
     Active Substance: CHOLECALCIFEROL
     Route: 048
     Dates: start: 2014
  2. BENADRYL [Concomitant]
     Active Substance: DIPHENHYDRAMINE HYDROCHLORIDE
  3. OCREVUS [Suspect]
     Active Substance: OCRELIZUMAB
     Indication: MULTIPLE SCLEROSIS
     Dosage: 14/FEB/2019, 15/AUG/2019, 13/FEB/2020?300 MG ON DAY 1 AND DAY 15 AND THEN 600 MG EVERY 6 MONTHS
     Route: 042
     Dates: start: 20190131
  4. DOXAZOSIN [Concomitant]
     Active Substance: DOXAZOSIN MESYLATE
     Indication: PROSTATOMEGALY
     Route: 048
     Dates: start: 2009
  5. DOXAZOSIN [Concomitant]
     Active Substance: DOXAZOSIN MESYLATE

REACTIONS (5)
  - Ear pruritus [Not Recovered/Not Resolved]
  - Pruritus [Recovered/Resolved]
  - Rash erythematous [Not Recovered/Not Resolved]
  - Muscle strain [Unknown]
  - Mobility decreased [Unknown]
